FAERS Safety Report 6785184-2 (Version None)
Quarter: 2010Q2

REPORT INFORMATION
  Report Type: 
  Country: None (occurrence: None)
  Receive Date: 20100621
  Receipt Date: 20100621
  Transmission Date: 20101027
  Serious: Yes (Hospitalization)
  Sender: FDA-Public Use
  Company Number: None

PATIENT
  Age: 53 Year
  Sex: Male
  Weight: 136.8 kg

DRUGS (6)
  1. TEMSIROLIMUS, 25MG WYETH [Suspect]
     Indication: PROSTATE CANCER
     Dosage: 25MG IV WEEKLY
     Route: 042
     Dates: start: 20100618
  2. AVASTIN [Suspect]
     Indication: PROSTATE CANCER
     Dosage: 1368MG IV EVERY OTHER WK
     Route: 042
  3. WARFARIN SODIUM [Concomitant]
  4. FLOMAX [Concomitant]
  5. LUPRON [Concomitant]
  6. DILAUDID BASAL OF THE PUMP [Concomitant]

REACTIONS (1)
  - PAIN [None]
